FAERS Safety Report 10065241 (Version 3)
Quarter: 2014Q4

REPORT INFORMATION
  Report Type: Spontaneous
  Country: US (occurrence: None)
  Receive Date: 20140404
  Receipt Date: 20141117
  Transmission Date: 20150528
  Serious: Yes (Hospitalization)
  Sender: FDA-Public Use
  Company Number: 2014MPI00270

PATIENT
  Age: 35 Year
  Sex: Female
  Weight: 52.5 kg

DRUGS (9)
  1. ONDANSETRON (ONDANSETRON HCL) [Suspect]
     Active Substance: ONDANSETRON
     Indication: PRODUCT USED FOR UNKNOWN INDICATION
     Route: 048
  2. DACARBAZINE. [Suspect]
     Active Substance: DACARBAZINE
     Indication: HODGKIN^S DISEASE
     Route: 042
     Dates: start: 20140312, end: 20140312
  3. LEUPROLIDE ACETATE. [Concomitant]
     Active Substance: LEUPROLIDE ACETATE
  4. DOXORUBICIN (DOXORUBICIN) INJECTION [Suspect]
     Active Substance: DOXORUBICIN
     Indication: HODGKIN^S DISEASE
     Route: 042
     Dates: start: 20140312, end: 20140312
  5. FLUCONAZOLE. [Concomitant]
     Active Substance: FLUCONAZOLE
  6. METRONIDAZOLE (METRONIDAZOLE SODIUM) [Concomitant]
  7. VITAMINS WITH MINERALS [Concomitant]
     Active Substance: MINERALS\VITAMINS
  8. VINBLASTINE [Suspect]
     Active Substance: VINBLASTINE
     Indication: HODGKIN^S DISEASE
     Route: 042
     Dates: start: 20140312, end: 20140312
  9. BRENTUXIMAB VEDOTIN (BRENTUXIMAB VEDOTIN) INJECTION [Suspect]
     Active Substance: BRENTUXIMAB VEDOTIN
     Indication: HODGKIN^S DISEASE
     Route: 042
     Dates: start: 20140312, end: 20140312

REACTIONS (13)
  - Hypophagia [None]
  - Failure to thrive [None]
  - Weight decreased [None]
  - Bone pain [None]
  - Disease progression [None]
  - Pyrexia [None]
  - Abdominal pain [None]
  - Decreased appetite [None]
  - Constipation [None]
  - Arthralgia [None]
  - Neutropenia [None]
  - Pain in jaw [None]
  - Myalgia [None]

NARRATIVE: CASE EVENT DATE: 20140319
